FAERS Safety Report 25326420 (Version 2)
Quarter: 2025Q2

REPORT INFORMATION
  Report Type: Spontaneous
  Country: US (occurrence: US)
  Receive Date: 20250516
  Receipt Date: 20250616
  Transmission Date: 20250717
  Serious: No
  Sender: PURDUE
  Company Number: US-PURDUE PHARMA-USA-2025-0317489

PATIENT
  Sex: Female

DRUGS (1)
  1. BUTRANS [Suspect]
     Active Substance: BUPRENORPHINE
     Indication: Pain management
     Route: 062

REACTIONS (3)
  - Application site urticaria [Recovered/Resolved]
  - Condition aggravated [Recovered/Resolved]
  - Inadequate analgesia [Recovered/Resolved]
